FAERS Safety Report 6269167-7 (Version None)
Quarter: 2009Q3

REPORT INFORMATION
  Report Type: 
  Country: None (occurrence: None)
  Receive Date: 20090715
  Receipt Date: 20090708
  Transmission Date: 20100115
  Serious: Yes (Other)
  Sender: FDA-Public Use
  Company Number: US-AVENTIS-200916011US

PATIENT
  Age: 14 Year
  Sex: Male

DRUGS (1)
  1. DDAVP [Suspect]
     Dosage: DOSE: 0.8 MORNING AND 0.7 EVENING

REACTIONS (3)
  - DRUG TOLERANCE [None]
  - HYPERNATRAEMIA [None]
  - URINE ANALYSIS ABNORMAL [None]
